FAERS Safety Report 6430094-3 (Version None)
Quarter: 2009Q4

REPORT INFORMATION
  Report Type: 
  Country: None (occurrence: None)
  Receive Date: 20091103
  Receipt Date: 20091028
  Transmission Date: 20100525
  Serious: Yes (Hospitalization)
  Sender: FDA-Public Use
  Company Number: 2009SP033221

PATIENT
  Age: 46 Year
  Sex: Female

DRUGS (2)
  1. CELESTAMINE TAB [Suspect]
     Indication: ARTHROPOD BITE
     Dosage: PO
     Route: 048
     Dates: start: 20090703, end: 20090709
  2. ORBENIN CAP [Suspect]
     Indication: ARTHROPOD BITE
     Dosage: PO
     Route: 048
     Dates: start: 20090703, end: 20090709

REACTIONS (1)
  - RASH GENERALISED [None]
